FAERS Safety Report 18622520 (Version 1)
Quarter: 2020Q4

REPORT INFORMATION
  Report Type: Spontaneous
  Country: GB (occurrence: GB)
  Receive Date: 20201216
  Receipt Date: 20201216
  Transmission Date: 20210114
  Serious: Yes (Other)
  Sender: FDA-Public Use
  Company Number: GB-PFIZER INC-2020491130

PATIENT
  Age: 36 Year
  Sex: Male
  Weight: 111.12 kg

DRUGS (1)
  1. SERTRALINE HCL [Suspect]
     Active Substance: SERTRALINE HYDROCHLORIDE
     Indication: DEPRESSION
     Dosage: 100 MG, 1X/DAY
     Route: 048
     Dates: start: 20180301, end: 20200301

REACTIONS (4)
  - Abnormal behaviour [Recovered/Resolved]
  - Alcoholism [Recovered/Resolved]
  - Amnesia [Recovered/Resolved]
  - Alcohol interaction [Recovered/Resolved with Sequelae]

NARRATIVE: CASE EVENT DATE: 20180301
